FAERS Safety Report 10873924 (Version 1)
Quarter: 2015Q1

REPORT INFORMATION
  Report Type: Report from Study
  Country: ES (occurrence: ES)
  Receive Date: 20150227
  Receipt Date: 20150227
  Transmission Date: 20150721
  Serious: Yes (Death, Other)
  Sender: FDA-Public Use
  Company Number: ES-CELGENE-ESP-2015024184

PATIENT
  Age: 66 Year
  Sex: Male
  Weight: 70 kg

DRUGS (11)
  1. DEPAKINE [Suspect]
     Active Substance: VALPROATE SODIUM
     Route: 065
     Dates: start: 20141206
  2. AZACITIDINE INJECTABLE [Suspect]
     Active Substance: AZACITIDINE
     Route: 065
     Dates: start: 20141206
  3. ARA-C [Suspect]
     Active Substance: CYTARABINE
     Indication: MYELODYSPLASTIC SYNDROME
     Route: 065
     Dates: start: 20140731
  4. IDARUBICIN [Suspect]
     Active Substance: IDARUBICIN
     Indication: MYELODYSPLASTIC SYNDROME
     Route: 065
     Dates: start: 20140731
  5. IDARUBICIN [Suspect]
     Active Substance: IDARUBICIN
     Route: 065
     Dates: start: 20141206, end: 20141210
  6. PIPERACILLIN [Concomitant]
     Active Substance: PIPERACILLIN
     Indication: FEBRILE NEUTROPENIA
     Route: 065
     Dates: start: 20141204, end: 20141212
  7. AZACITIDINE INJECTABLE [Suspect]
     Active Substance: AZACITIDINE
     Indication: MYELODYSPLASTIC SYNDROME
     Route: 050
     Dates: start: 20140731
  8. ARA-C [Suspect]
     Active Substance: CYTARABINE
     Route: 065
     Dates: start: 20141206, end: 20141210
  9. AMPHOTERICIN [Concomitant]
     Active Substance: AMPHOTERICIN B
     Indication: FUNGAL INFECTION
     Dosage: 12 GRAM
     Route: 065
     Dates: start: 20141206, end: 20141212
  10. DEPAKINE [Suspect]
     Active Substance: VALPROATE SODIUM
     Indication: MYELODYSPLASTIC SYNDROME
     Route: 065
     Dates: start: 20140731
  11. TAZOBACTAM [Concomitant]
     Active Substance: TAZOBACTAM
     Indication: FEBRILE NEUTROPENIA
     Route: 065
     Dates: start: 20141204, end: 20141212

REACTIONS (3)
  - Acute myeloid leukaemia [Unknown]
  - Pneumonia [Fatal]
  - Intestinal obstruction [Unknown]

NARRATIVE: CASE EVENT DATE: 20141204
